FAERS Safety Report 6092495-5 (Version None)
Quarter: 2009Q1

REPORT INFORMATION
  Report Type: 
  Country: None (occurrence: None)
  Receive Date: 20090225
  Receipt Date: 20090213
  Transmission Date: 20090719
  Serious: Yes (Life-Threatening)
  Sender: FDA-Public Use
  Company Number: DE-AVENTIS-200910406DE

PATIENT
  Age: 80 Year
  Sex: Male
  Weight: 83 kg

DRUGS (4)
  1. TAXOTERE [Suspect]
     Route: 042
     Dates: start: 20081105, end: 20081105
  2. PREDNISOLONE [Concomitant]
     Route: 048
     Dates: start: 20081031, end: 20081105
  3. ZOMETA [Concomitant]
     Route: 042
     Dates: start: 20061106, end: 20081105
  4. ZOLADEX [Concomitant]
     Route: 058
     Dates: start: 20020101

REACTIONS (1)
  - CARDIAC ARREST [None]
